FAERS Safety Report 4910193-5 (Version None)
Quarter: 2006Q1

REPORT INFORMATION
  Report Type: 
  Country: None (occurrence: None)
  Receive Date: 20060213
  Receipt Date: 20060203
  Transmission Date: 20060701
  Serious: Yes (Hospitalization)
  Sender: FDA-Public Use
  Company Number: US-MERCK-0602USA00863

PATIENT
  Age: 47 Year
  Sex: Female
  Weight: 60 kg

DRUGS (7)
  1. VIOXX [Suspect]
     Indication: PAIN MANAGEMENT
     Route: 048
     Dates: start: 20000601, end: 20030331
  2. VIOXX [Suspect]
     Route: 048
     Dates: start: 20000601, end: 20030331
  3. VIOXX [Suspect]
     Route: 048
     Dates: start: 20000601, end: 20030331
  4. NEURONTIN [Concomitant]
     Route: 065
  5. VICODIN [Concomitant]
     Route: 065
  6. ZOCOR [Concomitant]
     Route: 065
  7. CELEBREX [Concomitant]
     Route: 065

REACTIONS (6)
  - CARDIAC DISORDER [None]
  - CHEST PAIN [None]
  - GANGRENE [None]
  - MYOCARDIAL INFARCTION [None]
  - NECK PAIN [None]
  - PAIN IN EXTREMITY [None]
